FAERS Safety Report 13140880 (Version 1)
Quarter: 2017Q1

REPORT INFORMATION
  Report Type: Spontaneous
  Country: US (occurrence: US)
  Receive Date: 20170123
  Receipt Date: 20170123
  Transmission Date: 20170428
  Serious: No
  Sender: FDA-Public Use
  Company Number: US-UNITED THERAPEUTICS-UNT-2016-015239

PATIENT
  Age: 85 Year
  Sex: Female
  Weight: 74.38 kg

DRUGS (2)
  1. NORVASC [Concomitant]
     Active Substance: AMLODIPINE BESYLATE
     Indication: PRODUCT USED FOR UNKNOWN INDICATION
  2. TYVASO [Suspect]
     Active Substance: TREPROSTINIL
     Indication: PULMONARY ARTERIAL HYPERTENSION
     Dosage: 18-60 MICROGRAMS,QID
     Dates: start: 20150603

REACTIONS (7)
  - Throat irritation [Unknown]
  - Product use issue [Unknown]
  - Sinusitis [Unknown]
  - Cough [Unknown]
  - Oxygen consumption increased [Unknown]
  - Oral herpes [Recovered/Resolved]
  - Upper respiratory tract infection [Unknown]

NARRATIVE: CASE EVENT DATE: 201609
